FAERS Safety Report 8906718 (Version 1)
Quarter: 2012Q4

REPORT INFORMATION
  Report Type: 
  Country: US (occurrence: US)
  Receive Date: 20121113
  Receipt Date: 20121113
  Transmission Date: 20130627
  Serious: No
  Sender: FDA-Public Use
  Company Number: US-AMGEN-USASP2012010762

PATIENT
  Age: 58 Year
  Sex: Female
  Weight: 96.15 kg

DRUGS (13)
  1. ENBREL [Suspect]
     Indication: PRODUCT USED FOR UNKNOWN INDICATION
     Dosage: 50 mg, UNK
  2. CELEBREX [Concomitant]
  3. METHOTREXATE [Concomitant]
     Dosage: 2.5 mg, UNK
  4. PREDNISONE [Concomitant]
     Dosage: 5 mg, UNK
  5. VICODIN [Concomitant]
     Dosage: UNK
  6. MOEXIPRIL [Concomitant]
     Dosage: 7.5 mg, UNK
  7. FOLIC ACID [Concomitant]
     Dosage: 1 mg, UNK
  8. PRILOSEC                           /00661201/ [Concomitant]
     Dosage: 10 mg, UNK
  9. HYDROCHLOROTH [Concomitant]
     Dosage: 12.5 mg, UNK
  10. MULTIVITAMIN                       /00097801/ [Concomitant]
     Dosage: UNK
  11. VITAMIN B-12 [Concomitant]
     Dosage: UNK
  12. VITAMIN D /00107901/ [Concomitant]
     Dosage: UNK
  13. CALCIUM + VIT D [Concomitant]
     Dosage: UNK

REACTIONS (2)
  - Asthma [Recovered/Resolved]
  - Bronchitis [Recovered/Resolved]
